FAERS Safety Report 11720942 (Version 1)
Quarter: 2015Q4

REPORT INFORMATION
  Report Type: Spontaneous
  Country: US (occurrence: US)
  Receive Date: 20151110
  Receipt Date: 20151110
  Transmission Date: 20160304
  Serious: No
  Sender: FDA-Public Use
  Company Number: US-SA-2015SA147914

PATIENT
  Age: 68 Year
  Sex: Female

DRUGS (6)
  1. MICARDIS [Concomitant]
     Active Substance: TELMISARTAN
     Indication: CARDIAC DISORDER
  2. PRALUENT [Suspect]
     Active Substance: ALIROCUMAB
     Indication: BLOOD CHOLESTEROL INCREASED
     Dosage: FREQUENCY:EVERY 2 WEEKS
     Route: 065
     Dates: start: 20150914
  3. CLOPIDOGREL [Concomitant]
     Active Substance: CLOPIDOGREL BISULFATE
  4. RABEPRAZOLE [Concomitant]
     Active Substance: RABEPRAZOLE
  5. ALIROCUMAB PREFILLED PEN [Concomitant]
  6. PERCOCET [Concomitant]
     Active Substance: ACETAMINOPHEN\OXYCODONE HYDROCHLORIDE
     Indication: THYROID DISORDER

REACTIONS (1)
  - Pain [Unknown]

NARRATIVE: CASE EVENT DATE: 201509
